FAERS Safety Report 4973764-6 (Version None)
Quarter: 2006Q2

REPORT INFORMATION
  Report Type: 
  Country: None (occurrence: None)
  Receive Date: 20060414
  Receipt Date: 20050218
  Transmission Date: 20061013
  Serious: Yes (Hospitalization)
  Sender: FDA-Public Use
  Company Number: US-MERCK-0502USA02723

PATIENT
  Age: 74 Year
  Sex: Female
  Weight: 100 kg

DRUGS (25)
  1. ALLEGRA [Concomitant]
     Route: 065
  2. VITAMIN E [Concomitant]
     Route: 065
  3. ASPIRIN AND HYDROCODONE BITARTRATE [Concomitant]
     Route: 065
  4. VIOXX [Suspect]
     Indication: ARTHRITIS
     Route: 048
     Dates: start: 20000405
  5. VIOXX [Suspect]
     Route: 048
     Dates: start: 20020101, end: 20030101
  6. TRAZODONE HYDROCHLORIDE [Concomitant]
     Route: 065
  7. HYDROCHLOROTHIAZIDE [Concomitant]
     Route: 048
  8. VITAMINS (UNSPECIFIED) [Concomitant]
     Route: 065
  9. OMEGA-3 MARINE TRIGLYCERIDES [Concomitant]
     Route: 065
  10. GARLIC [Concomitant]
     Route: 065
  11. GINGER [Concomitant]
     Route: 065
  12. CALCIUM (UNSPECIFIED) [Concomitant]
     Route: 065
  13. PREVACID [Concomitant]
     Route: 048
  14. TOPROL-XL [Concomitant]
     Route: 065
  15. NORVASC [Concomitant]
     Route: 065
  16. AVAPRO [Concomitant]
     Route: 065
  17. ZOCOR [Concomitant]
     Route: 048
  18. FOSAMAX [Concomitant]
     Route: 048
  19. ADALAT CC [Concomitant]
     Route: 065
  20. MAGNESIUM (UNSPECIFIED) [Concomitant]
     Route: 065
  21. ASPIRIN [Concomitant]
     Route: 065
  22. PREVIDENT 5000 PLUS [Concomitant]
     Route: 065
  23. FUROSEMIDE [Concomitant]
     Route: 065
  24. AMOXICILLIN [Concomitant]
     Route: 065
  25. GUAIFENESIN [Concomitant]
     Route: 065

REACTIONS (19)
  - ACUTE CORONARY SYNDROME [None]
  - AORTIC ARTERIOSCLEROSIS [None]
  - ARTHRALGIA [None]
  - CHEST PAIN [None]
  - CORONARY ARTERY DISEASE [None]
  - CORONARY ARTERY THROMBOSIS [None]
  - DIVERTICULUM [None]
  - GASTRITIS [None]
  - HAEMATOCHEZIA [None]
  - HAEMORRHOIDS [None]
  - INJURY [None]
  - LIVER FUNCTION TEST ABNORMAL [None]
  - MYOCARDIAL INFARCTION [None]
  - OCCULT BLOOD POSITIVE [None]
  - OTITIS MEDIA [None]
  - RENAL ARTERY STENOSIS [None]
  - RENAL CYST [None]
  - SLEEP APNOEA SYNDROME [None]
  - VERTIGO LABYRINTHINE [None]
